FAERS Safety Report 8990898 (Version 1)
Quarter: 2012Q4

REPORT INFORMATION
  Report Type: Spontaneous
  Country: CH (occurrence: None)
  Receive Date: 20121221
  Receipt Date: 20121221
  Transmission Date: 20130627
  Serious: Yes (Other)
  Sender: FDA-Public Use
  Company Number: DSA_61431_2012

PATIENT
  Sex: Female

DRUGS (3)
  1. WELLBUTRIN XR-BUPROPION HYDROCHLORIDE [Suspect]
     Indication: DEPRESSION
     Route: 048
     Dates: start: 20121117, end: 20121117
  2. EFEXOR (EFEXOR-VENLAFAXINE HYDROCHLORIDE) (NOT SPECIFIED) [Suspect]
     Indication: DEPRESSION
     Route: 048
     Dates: end: 20121111
  3. EFEXOR (EFEXOR-VENLAFAXINE HYDROCHLORIDE) (NOT SPECIFIED) [Suspect]
     Indication: DEPRESSION
     Route: 048
     Dates: start: 20121112, end: 20121118

REACTIONS (5)
  - Urinary retention [None]
  - Constipation [None]
  - Dizziness [None]
  - Gait disturbance [None]
  - Withdrawal syndrome [None]
